FAERS Safety Report 5352180-1 (Version None)
Quarter: 2007Q2

REPORT INFORMATION
  Report Type: 
  Country: None (occurrence: None)
  Receive Date: 20070606
  Receipt Date: 20070525
  Transmission Date: 20071010
  Serious: Yes (Death)
  Sender: FDA-Public Use
  Company Number: A-CH2007-15863

PATIENT
  Age: 71 Year
  Sex: Male
  Weight: 75 kg

DRUGS (5)
  1. TRACLEER [Suspect]
     Indication: SYSTEMIC SCLEROSIS
     Dosage: 62.5 MG, BID, ORAL
     Route: 048
     Dates: start: 20070306, end: 20070309
  2. ATACAND [Concomitant]
  3. METOPROLOL SUCCINATE [Concomitant]
  4. INSPRA [Concomitant]
  5. UNAT (TORASEMIDE) [Concomitant]

REACTIONS (18)
  - ARRHYTHMIA [None]
  - ASCITES [None]
  - ATRIAL FIBRILLATION [None]
  - BLOOD ALKALINE PHOSPHATASE INCREASED [None]
  - BRAIN NATRIURETIC PEPTIDE INCREASED [None]
  - CARDIAC FAILURE CONGESTIVE [None]
  - ENTEROCOCCAL INFECTION [None]
  - HEPATIC STEATOSIS [None]
  - HEPATOMEGALY [None]
  - PLEURAL EFFUSION [None]
  - PSEUDOMONAS INFECTION [None]
  - PULMONARY EMBOLISM [None]
  - PULMONARY FIBROSIS [None]
  - SKIN ULCER [None]
  - STAPHYLOCOCCAL INFECTION [None]
  - SUDDEN CARDIAC DEATH [None]
  - SYSTEMIC SCLEROSIS [None]
  - WOUND INFECTION BACTERIAL [None]
